FAERS Safety Report 8377990 (Version 2)
Quarter: 2013Q1

REPORT INFORMATION
  Report Type: Report from Study
  Country: US (occurrence: US)
  Receive Date: 20120128
  Receipt Date: 20130129
  Transmission Date: 20140127
  Serious: No
  Sender: FDA-Public Use
  Company Number: US-ABBOTT-11P-163-0847646-00

PATIENT
  Age: 32 None
  Sex: Female

DRUGS (6)
  1. HUMIRA 40 MG/0.8 ML PEN [Suspect]
     Indication: RHEUMATOID ARTHRITIS
     Dosage: INTERRUPTED
     Dates: start: 2003
  2. ANTIBIOTICS [Suspect]
     Indication: BLOOD URINE PRESENT
     Dosage: 3 ROUNDS
     Dates: start: 201106
  3. ANTIBIOTICS [Suspect]
     Indication: CRYSTALLURIA
  4. LEXAPRO [Concomitant]
     Indication: ANXIETY
  5. FOLIC ACID [Concomitant]
     Indication: PRODUCT USED FOR UNKNOWN INDICATION
     Dosage: DAILY
  6. METHOTREXATE [Concomitant]
     Indication: RHEUMATOID ARTHRITIS

REACTIONS (5)
  - Blood urine present [Not Recovered/Not Resolved]
  - Crystalluria [Not Recovered/Not Resolved]
  - Diarrhoea [Recovered/Resolved]
  - Oedema peripheral [Unknown]
  - Ovarian cyst [Recovered/Resolved]
